FAERS Safety Report 23526187 (Version 2)
Quarter: 2024Q2

REPORT INFORMATION
  Report Type: Spontaneous
  Country: GB (occurrence: None)
  Receive Date: 20240215
  Receipt Date: 20240501
  Transmission Date: 20240716
  Serious: Yes (Hospitalization)
  Sender: FDA-Public Use
  Company Number: GB-ROCHE-3357607

PATIENT
  Sex: Female

DRUGS (2)
  1. TOCILIZUMAB [Suspect]
     Active Substance: TOCILIZUMAB
     Indication: Rheumatoid arthritis
     Route: 058
     Dates: start: 2018
  2. TOCILIZUMAB [Suspect]
     Active Substance: TOCILIZUMAB
     Route: 058
     Dates: start: 2021

REACTIONS (5)
  - COVID-19 [Unknown]
  - Herpes zoster [Unknown]
  - Ill-defined disorder [Unknown]
  - Foot deformity [Unknown]
  - Nodule [Unknown]

NARRATIVE: CASE EVENT DATE: 20230509
